FAERS Safety Report 9114407 (Version 5)
Quarter: 2014Q1

REPORT INFORMATION
  Report Type: Spontaneous
  Country: US (occurrence: US)
  Receive Date: 20130209
  Receipt Date: 20140324
  Transmission Date: 20141002
  Serious: Yes (Hospitalization)
  Sender: FDA-Public Use
  Company Number: US-B.I. PHARMACEUTICALS,INC./RIDGEFIELD-2013-BI-03354BP

PATIENT
  Age: 84 Year
  Sex: Male
  Weight: 81.65 kg

DRUGS (7)
  1. PRADAXA [Suspect]
     Indication: ANTICOAGULANT THERAPY
     Dosage: 300 MG
     Route: 048
     Dates: start: 20110531, end: 20120504
  2. PRADAXA [Suspect]
     Indication: ATRIAL FIBRILLATION
  3. TOPROL [Concomitant]
     Route: 065
  4. ALLOPURINOL [Concomitant]
     Route: 065
  5. LISINOPRIL [Concomitant]
     Route: 065
  6. LASIX [Concomitant]
     Route: 065
  7. GLUCOSAMINE [Concomitant]
     Route: 065

REACTIONS (1)
  - Gastrointestinal haemorrhage [Recovered/Resolved]
